FAERS Safety Report 21755190 (Version 1)
Quarter: 2022Q4

REPORT INFORMATION
  Report Type: Spontaneous
  Country: US (occurrence: None)
  Receive Date: 20221220
  Receipt Date: 20221220
  Transmission Date: 20230113
  Serious: Yes (Other)
  Sender: FDA-Public Use
  Company Number: None

PATIENT
  Age: 20 Year
  Sex: Female
  Weight: 58.06 kg

DRUGS (1)
  1. PARAGARD T 380A [Suspect]
     Active Substance: COPPER

REACTIONS (6)
  - Pain [None]
  - Menstruation irregular [None]
  - Heavy menstrual bleeding [None]
  - Oligomenorrhoea [None]
  - Dyspareunia [None]
  - Ectopic pregnancy [None]

NARRATIVE: CASE EVENT DATE: 20200401
